FAERS Safety Report 8518166-0 (Version None)
Quarter: 2012Q3

REPORT INFORMATION
  Report Type: 
  Country: None (occurrence: None)
  Receive Date: 20120718
  Receipt Date: 20111013
  Transmission Date: 20120928
  Serious: No
  Sender: FDA-Public Use
  Company Number: US-BRISTOL-MYERS SQUIBB COMPANY-16158933

PATIENT
  Age: 69 Year
  Sex: Female

DRUGS (5)
  1. LISINOPRIL [Concomitant]
  2. CARVEDILOL [Concomitant]
  3. XANAX [Concomitant]
  4. WARFARIN SODIUM [Suspect]
  5. CRESTOR [Concomitant]

REACTIONS (1)
  - BLOOD URINE PRESENT [None]
